FAERS Safety Report 10476791 (Version 1)
Quarter: 2014Q3

REPORT INFORMATION
  Report Type: Spontaneous
  Country: JP (occurrence: JP)
  Receive Date: 20140925
  Receipt Date: 20140925
  Transmission Date: 20150326
  Serious: Yes (Death, Hospitalization)
  Sender: FDA-Public Use
  Company Number: PHHY2014JP123310

PATIENT
  Age: 72 Year
  Sex: Female

DRUGS (11)
  1. FUROSEMIDE. [Concomitant]
     Active Substance: FUROSEMIDE
     Dosage: 4 MG, UNK
  2. AMLODIPINE [Concomitant]
     Active Substance: AMLODIPINE BESYLATE
     Dosage: 2.5 MG, UNK
  3. NATEGLINIDE. [Concomitant]
     Active Substance: NATEGLINIDE
     Indication: DIABETES MELLITUS
     Dosage: 90 MG, UNK
  4. CEFOTIAM [Suspect]
     Active Substance: CEFOTIAM
     Indication: INFECTION
  5. WARFARIN [Concomitant]
     Active Substance: WARFARIN
     Dosage: 2 MG, UNK
  6. CANDESARTAN [Concomitant]
     Active Substance: CANDESARTAN
     Dosage: 8 MG, UNK
  7. GENTAMICIN [Suspect]
     Active Substance: GENTAMICIN
     Indication: INFECTION
  8. LANSOPRAZOLE. [Concomitant]
     Active Substance: LANSOPRAZOLE
     Indication: GASTRIC ULCER
     Dosage: 30 MG, UNK
  9. ASPIRIN. [Concomitant]
     Active Substance: ASPIRIN
     Dosage: 100 MG, UNK
  10. NICORANDIL [Concomitant]
     Active Substance: NICORANDIL
     Indication: MYOCARDIAL ISCHAEMIA
     Dosage: 10 MG, QD
  11. REBAMIPIDE [Concomitant]
     Active Substance: REBAMIPIDE
     Indication: GASTRIC ULCER
     Dosage: 300 MG, QD

REACTIONS (15)
  - Hypoxia [Fatal]
  - Urine output decreased [Unknown]
  - Metabolic acidosis [Unknown]
  - Multi-organ failure [Fatal]
  - Methaemoglobinaemia [Fatal]
  - Skin discolouration [Fatal]
  - Altered state of consciousness [Fatal]
  - Haemolysis [Unknown]
  - Fatigue [Fatal]
  - Blood pressure decreased [Unknown]
  - Anuria [Unknown]
  - Dehydration [Unknown]
  - Decreased appetite [Unknown]
  - Renal impairment [Unknown]
  - Oxygen saturation decreased [Fatal]
